FAERS Safety Report 23866638 (Version 2)
Quarter: 2024Q3

REPORT INFORMATION
  Report Type: Report from Study
  Country: US (occurrence: US)
  Receive Date: 20240517
  Receipt Date: 20240906
  Transmission Date: 20241017
  Serious: Yes (Other)
  Sender: GILEAD
  Company Number: US-GILEAD-2024-0672915

PATIENT
  Age: 11 Year
  Sex: Male
  Weight: 35.4 kg

DRUGS (3)
  1. AMBRISENTAN [Suspect]
     Active Substance: AMBRISENTAN
     Indication: Pulmonary arterial hypertension
     Dosage: 10 MG, QD
     Route: 065
     Dates: start: 202405
  2. SILDENAFIL [Concomitant]
     Active Substance: SILDENAFIL
  3. TRACLEER [Concomitant]
     Active Substance: BOSENTAN

REACTIONS (2)
  - Deafness [Not Recovered/Not Resolved]
  - Off label use [Not Recovered/Not Resolved]
